FAERS Safety Report 7914953-8 (Version None)
Quarter: 2011Q4

REPORT INFORMATION
  Report Type: 
  Country: None (occurrence: None)
  Receive Date: 20111115
  Receipt Date: 20111111
  Transmission Date: 20120403
  Serious: No
  Sender: FDA-Public Use
  Company Number: US-PFIZER INC-2011277228

PATIENT
  Age: 46 Year
  Sex: Female

DRUGS (2)
  1. SKELAXIN [Suspect]
     Indication: PRODUCT USED FOR UNKNOWN INDICATION
     Dosage: UNK
  2. SKELAXIN [Suspect]
     Dosage: 800 MG, UNK

REACTIONS (1)
  - DRUG INEFFECTIVE [None]
